FAERS Safety Report 23408711 (Version 3)
Quarter: 2024Q1

REPORT INFORMATION
  Report Type: Spontaneous
  Country: US (occurrence: US)
  Receive Date: 20240117
  Receipt Date: 20240329
  Transmission Date: 20240410
  Serious: Yes (Hospitalization, Other)
  Sender: FDA-Public Use
  Company Number: US-SUNPHARMA-2024R1-426938AA

PATIENT
  Sex: Female

DRUGS (1)
  1. ILUMYA [Suspect]
     Active Substance: TILDRAKIZUMAB-ASMN
     Indication: Product used for unknown indication
     Dosage: UNK
     Route: 065

REACTIONS (6)
  - Influenza [Unknown]
  - Product dose omission issue [Unknown]
  - Drug ineffective [Unknown]
  - Treatment delayed [Unknown]
  - Pruritus [Unknown]
  - Therapeutic product effect delayed [Unknown]
